FAERS Safety Report 18380023 (Version 3)
Quarter: 2022Q3

REPORT INFORMATION
  Report Type: Report from Study
  Country: JP (occurrence: JP)
  Receive Date: 20201014
  Receipt Date: 20220801
  Transmission Date: 20221026
  Serious: Yes (Death)
  Sender: FDA-Public Use
  Company Number: JP-SERVIER-S20010210

PATIENT
  Age: 75 Year
  Sex: Male
  Weight: 42.3 kg

DRUGS (2)
  1. IVABRADINE [Suspect]
     Active Substance: IVABRADINE
     Indication: Cardiac failure chronic
     Dosage: 5 MILLIGRAM
     Route: 065
     Dates: start: 20200917, end: 20200924
  2. CARVEDILOL [Concomitant]
     Active Substance: CARVEDILOL
     Indication: Product used for unknown indication
     Dosage: 2.5 MILLIGRAM, QD
     Route: 048

REACTIONS (1)
  - Septic shock [Fatal]

NARRATIVE: CASE EVENT DATE: 20200101
